FAERS Safety Report 8215346-9 (Version None)
Quarter: 2012Q1

REPORT INFORMATION
  Report Type: 
  Country: None (occurrence: None)
  Receive Date: 20120316
  Receipt Date: 20120309
  Transmission Date: 20120608
  Serious: Yes (Hospitalization)
  Sender: FDA-Public Use
  Company Number: CH-PFIZER INC-2012067344

PATIENT
  Age: 69 Year
  Sex: Female

DRUGS (8)
  1. FLECTOR [Suspect]
     Dosage: UNK
     Route: 061
     Dates: start: 20110101
  2. ROSUVASTATIN [Concomitant]
     Dosage: 1 DF, UNK
     Route: 048
     Dates: end: 20120125
  3. PANTOPRAZOLE [Suspect]
     Dosage: 40 MG, UNK
     Route: 048
     Dates: start: 20120101, end: 20120125
  4. ALENDRONATE SODIUM [Concomitant]
     Dosage: UNK
     Route: 048
     Dates: end: 20110101
  5. LETROZOLE [Concomitant]
     Dosage: 2.5 MG, UNK
     Route: 048
     Dates: start: 20111001
  6. DENOSUMAB [Concomitant]
  7. VITAMIN D [Concomitant]
     Route: 048
  8. CALCIUM [Concomitant]
     Route: 048

REACTIONS (2)
  - RENAL FAILURE ACUTE [None]
  - TUBULOINTERSTITIAL NEPHRITIS [None]
